FAERS Safety Report 10186847 (Version 4)
Quarter: 2014Q4

REPORT INFORMATION
  Report Type: Spontaneous
  Country: FR (occurrence: FR)
  Receive Date: 20140522
  Receipt Date: 20141226
  Transmission Date: 20150528
  Serious: Yes (Hospitalization)
  Sender: FDA-Public Use
  Company Number: FR-ROCHE-1164753

PATIENT
  Age: 55 Year
  Sex: Female

DRUGS (12)
  1. MABTHERA [Suspect]
     Active Substance: RITUXIMAB
     Dosage: 3RD COURSE : 29/APR/2014.
     Route: 042
     Dates: start: 20140211
  2. CARBOPLATIN. [Concomitant]
     Active Substance: CARBOPLATIN
     Route: 065
     Dates: start: 20140429
  3. CARBOPLATIN. [Concomitant]
     Active Substance: CARBOPLATIN
     Route: 065
     Dates: start: 20140530
  4. MABTHERA [Suspect]
     Active Substance: RITUXIMAB
     Indication: B-CELL LYMPHOMA
     Route: 042
     Dates: start: 201109, end: 20121001
  5. ZALDIAR [Concomitant]
     Active Substance: ACETAMINOPHEN\TRAMADOL HYDROCHLORIDE
  6. OKIMUS [Suspect]
     Active Substance: HAWTHORN LEAF WITH FLOWER\QUININE
     Indication: MUSCLE SPASMS
     Dosage: DOSE VALUE- 2 DOSE- DF
     Route: 048
     Dates: end: 20121022
  7. DONORMYL [Concomitant]
     Active Substance: DOXYLAMINE SUCCINATE
  8. DEXAMETHASONE. [Concomitant]
     Active Substance: DEXAMETHASONE
     Route: 065
     Dates: start: 20140429
  9. DOXORUBICIN [Concomitant]
     Active Substance: DOXORUBICIN
     Route: 065
     Dates: start: 20140429
  10. ISOFOSFAMIDE [Concomitant]
     Route: 065
     Dates: start: 20140530
  11. ETOPOSIDE. [Concomitant]
     Active Substance: ETOPOSIDE
     Route: 065
     Dates: start: 20140530
  12. ARA-C [Concomitant]
     Active Substance: CYTARABINE
     Route: 065
     Dates: start: 20140429

REACTIONS (2)
  - Pyrexia [Recovered/Resolved]
  - Agranulocytosis [Recovered/Resolved]

NARRATIVE: CASE EVENT DATE: 20121022
